FAERS Safety Report 12437884 (Version 1)
Quarter: 2016Q2

REPORT INFORMATION
  Report Type: Spontaneous
  Country: FR (occurrence: FR)
  Receive Date: 20160606
  Receipt Date: 20160606
  Transmission Date: 20160815
  Serious: Yes (Hospitalization)
  Sender: FDA-Public Use
  Company Number: FR-PFIZER INC-2016279125

PATIENT
  Age: 83 Year
  Sex: Male

DRUGS (4)
  1. EFFEXOR [Suspect]
     Active Substance: VENLAFAXINE HYDROCHLORIDE
     Indication: DEPRESSION
     Dosage: 75 MG, 2X/DAY
     Route: 048
  2. ZYPREXA [Suspect]
     Active Substance: OLANZAPINE
     Indication: THYMUS DISORDER
     Dosage: 5 MG, 1X/DAY
     Route: 048
  3. NOCTAMIDE [Suspect]
     Active Substance: LORMETAZEPAM
     Indication: INSOMNIA
     Dosage: 1 MG, 1X/DAY
     Route: 048
  4. LYSANXIA [Suspect]
     Active Substance: PRAZEPAM
     Indication: DEPRESSION
     Dosage: 5 MG (0.5 DF), 2X/DAY
     Route: 048
     Dates: end: 20150922

REACTIONS (6)
  - Fall [Recovered/Resolved]
  - Sluggishness [Unknown]
  - Malaise [Recovered/Resolved]
  - Psychomotor skills impaired [Unknown]
  - Skin injury [Unknown]
  - Wound [Unknown]

NARRATIVE: CASE EVENT DATE: 20150918
